FAERS Safety Report 6611842-6 (Version None)
Quarter: 2010Q1

REPORT INFORMATION
  Report Type: 
  Country: None (occurrence: None)
  Receive Date: 20100225
  Receipt Date: 20100213
  Transmission Date: 20100710
  Serious: Yes (Death, Hospitalization)
  Sender: FDA-Public Use
  Company Number: 2009AC000083

PATIENT
  Age: 89 Year
  Sex: Female

DRUGS (52)
  1. DIGOXIN [Suspect]
     Indication: CARDIAC DISORDER
     Dosage: 0.125 MG; QD; PO
     Route: 048
     Dates: start: 20070201, end: 20080425
  2. DIGOXIN [Suspect]
     Dosage: 0.125 MG; QOD; PO
     Route: 048
     Dates: start: 20071001
  3. DIGOXIN [Suspect]
     Dosage: .125 MG; QD; PO
     Route: 048
     Dates: start: 20070717, end: 20071001
  4. DIGOXIN [Suspect]
     Dosage: .125 MG; BID; PO
     Route: 048
     Dates: start: 20071001
  5. METOPROLOL TARTRATE [Concomitant]
  6. LISINOPRIL [Concomitant]
  7. ASPIRIN [Concomitant]
  8. DILTIAZEM HCL [Concomitant]
  9. LASIX [Concomitant]
  10. WARFARIN SODIUM [Concomitant]
  11. SIMVASTATIN [Concomitant]
  12. OXYBUTYNIN [Concomitant]
  13. NEXIUM [Concomitant]
  14. VESICARE [Concomitant]
  15. ENABLEX [Concomitant]
  16. LEVOTHYROXINE SODIUM [Concomitant]
  17. AMIODARONE HCL [Concomitant]
  18. LOVENOX [Concomitant]
  19. ADVAIR DISKUS 100/50 [Concomitant]
  20. ALBUTEROL [Concomitant]
  21. OMEPRAZOLE [Concomitant]
  22. GRANULEX [Concomitant]
  23. AMOXICILLIN [Concomitant]
  24. FLUZONE [Concomitant]
  25. PACERONE [Concomitant]
  26. MECLIZINE [Concomitant]
  27. LOTENSIN [Concomitant]
  28. MYTUSSIN [Concomitant]
  29. DIAZEPAM [Concomitant]
  30. BENAZEPRIL HYDROCHLORIDE [Concomitant]
  31. KLOR-CON [Concomitant]
  32. AMBIENT [Concomitant]
  33. VICODIN [Concomitant]
  34. AMIODARONE HCL [Concomitant]
  35. ADVAIR DISKUS 100/50 [Concomitant]
  36. ALBUTEROL [Concomitant]
  37. AMOXICILLIN [Concomitant]
  38. METOPROLOL TARTRATE [Concomitant]
  39. SIMVASTATIN-MEPHA [Concomitant]
  40. ASPIRIN [Concomitant]
  41. BENAZEPRIL HYDROCHLORIDE [Concomitant]
  42. ZOCOR [Concomitant]
  43. TYLENOL-500 [Concomitant]
  44. NITROGLYCERIN [Concomitant]
  45. DILTIAZEM HCL [Concomitant]
  46. COUMADIN [Concomitant]
  47. ZANTAC [Concomitant]
  48. ENABLEX [Concomitant]
  49. NITROGLYCERIN [Concomitant]
  50. COTRIM [Concomitant]
  51. CIPROFLOXACIN [Concomitant]
  52. AMITRIPTYLINE HCL [Concomitant]

REACTIONS (45)
  - ABDOMINAL PAIN UPPER [None]
  - ACUTE MYOCARDIAL INFARCTION [None]
  - ANAEMIA [None]
  - ANHEDONIA [None]
  - ARTHRALGIA [None]
  - ATELECTASIS [None]
  - ATRIAL FIBRILLATION [None]
  - BACTERIAL TEST POSITIVE [None]
  - BREAST CANCER [None]
  - CARDIAC FAILURE CONGESTIVE [None]
  - CEREBRAL ISCHAEMIA [None]
  - CEREBROVASCULAR ACCIDENT [None]
  - CHEST PAIN [None]
  - CORONARY ARTERY DISEASE [None]
  - CYSTOCELE [None]
  - DEPRESSION [None]
  - DYSPNOEA [None]
  - EMOTIONAL DISTRESS [None]
  - ENURESIS [None]
  - FALL [None]
  - GASTROOESOPHAGEAL REFLUX DISEASE [None]
  - HEARING IMPAIRED [None]
  - HEART RATE ABNORMAL [None]
  - HIP FRACTURE [None]
  - HYPERLIPIDAEMIA [None]
  - HYPERTENSION [None]
  - HYPOTHYROIDISM [None]
  - INSOMNIA [None]
  - LOSS OF EMPLOYMENT [None]
  - MENTAL STATUS CHANGES [None]
  - MITRAL VALVE INCOMPETENCE [None]
  - MULTIPLE INJURIES [None]
  - NEUROPATHY PERIPHERAL [None]
  - NITRITE URINE ABSENT [None]
  - PAIN [None]
  - PLEURAL EFFUSION [None]
  - PULMONARY HYPERTENSION [None]
  - RHEUMATOID ARTHRITIS [None]
  - STRESS URINARY INCONTINENCE [None]
  - SYNCOPE [None]
  - URGE INCONTINENCE [None]
  - URINARY INCONTINENCE [None]
  - URINARY TRACT INFECTION [None]
  - URINARY TRACT INFECTION ENTEROCOCCAL [None]
  - WHITE BLOOD CELLS URINE POSITIVE [None]
